FAERS Safety Report 4562817-2 (Version None)
Quarter: 2005Q1

REPORT INFORMATION
  Report Type: 
  Country: None (occurrence: None)
  Receive Date: 20050124
  Receipt Date: 20050113
  Transmission Date: 20050727
  Serious: Yes (Hospitalization)
  Sender: FDA-Public Use
  Company Number: 2005-01-0002

PATIENT
  Age: 40 Year
  Sex: Male
  Weight: 105 kg

DRUGS (2)
  1. VIRAFERONPEG [Suspect]
     Indication: CHRONIC HEPATITIS
     Dosage: 0.5 ML SUBCUTANEOUS
     Route: 058
     Dates: start: 20041118, end: 20041118
  2. REBETOL [Suspect]
     Indication: CHRONIC HEPATITIS
     Dosage: 600 MG BID ORAL
     Route: 048
     Dates: start: 20041118, end: 20041118

REACTIONS (6)
  - DRUG HYPERSENSITIVITY [None]
  - HYPERAESTHESIA [None]
  - INFLAMMATION [None]
  - INFLUENZA LIKE ILLNESS [None]
  - INJECTION SITE REACTION [None]
  - SKIN TEST POSITIVE [None]
